FAERS Safety Report 8473436-X (Version None)
Quarter: 2012Q2

REPORT INFORMATION
  Report Type: 
  Country: None (occurrence: None)
  Receive Date: 20120628
  Receipt Date: 20120621
  Transmission Date: 20120825
  Serious: Yes (Life-Threatening, Hospitalization, Other)
  Sender: FDA-Public Use
  Company Number: US-ELI_LILLY_AND_COMPANY-US201202007426

PATIENT
  Sex: Male

DRUGS (32)
  1. LANTUS [Concomitant]
     Dosage: 30 U, AT NIGHT
  2. LISINOPRIL [Concomitant]
     Dosage: 5 MG, QD
     Dates: start: 20110719
  3. DOXAZOSIN MESYLATE [Concomitant]
     Dosage: 2 MG, BID
     Dates: start: 20111109
  4. NORVASC [Concomitant]
     Dosage: 5 MG, QD
     Dates: start: 20120402
  5. AMLODIPINE [Concomitant]
     Dosage: 5 MG, QD
  6. OMEPRAZOLE [Concomitant]
     Dosage: 20 MG, QD
     Dates: start: 20100405, end: 20101229
  7. LANTUS [Concomitant]
     Dosage: 50 U, AT NIGHT
     Dates: start: 20090223
  8. ASPIRIN [Concomitant]
     Dosage: 81 MG, QD
     Dates: start: 20060731
  9. LANTUS [Concomitant]
     Dosage: 40 U, AT NIGHT
     Dates: start: 20071203
  10. LANTUS [Concomitant]
     Dosage: SLIDING SCALE
     Dates: start: 20090518
  11. LANTUS [Concomitant]
     Dosage: 35 U, AT NIGHT
     Dates: start: 20100104
  12. LANTUS [Concomitant]
     Dosage: 25 U, AT NIGHT
     Dates: start: 20101109
  13. LISINOPRIL [Concomitant]
     Dosage: 5 MG, QD
     Dates: start: 20100525
  14. VERAPAMIL [Concomitant]
  15. SIMVASTATIN [Concomitant]
     Dosage: NO MORE THAN 20 MG, QD
  16. METOPROLOL TARTRATE [Concomitant]
     Dosage: 50 MG, QD
     Dates: start: 20101229, end: 20111220
  17. PAXIL [Concomitant]
     Dosage: 20 MG, QD
     Dates: start: 20101229
  18. PROPRANOLOL [Concomitant]
     Dosage: 20 MG, BID
     Dates: start: 20111220
  19. LANTUS [Concomitant]
     Dosage: 40 U, AT NIGHT
     Dates: start: 20090831
  20. SIMVASTATIN [Concomitant]
     Dosage: 40 MG, QD
  21. VITAMIN D [Concomitant]
     Dosage: 50000 U, WEEKLY (1/W)
     Dates: start: 20100525
  22. PAXIL [Concomitant]
     Dosage: 40 MG, QD
     Dates: start: 20110329
  23. VITAMIN D [Concomitant]
     Dosage: 2000 U, QD
     Dates: start: 20101229
  24. XANAX [Concomitant]
     Dosage: 1.0 MG, TID
     Dates: start: 20100104
  25. OMEPRAZOLE [Concomitant]
     Dosage: 20 MG, QD
     Dates: start: 20110322
  26. HUMALOG [Suspect]
     Indication: TYPE 2 DIABETES MELLITUS
     Dosage: 10 U, SLIDING SCALE
     Dates: start: 20090831
  27. LISINOPRIL [Concomitant]
     Dosage: 20 MG, QD
     Dates: start: 20090831, end: 20100405
  28. LIPITOR [Concomitant]
     Dosage: 20 MG, QD
     Dates: start: 20060731, end: 20120402
  29. NORVASC [Concomitant]
     Dosage: 10 MG, QD
     Dates: start: 20101209
  30. LANTUS [Concomitant]
     Dosage: 25 U, AT NIGHT
     Dates: start: 20060731
  31. DOXAZOSIN MESYLATE [Concomitant]
     Dosage: 2 MG, BID
     Dates: start: 20101109
  32. METOPROLOL TARTRATE [Concomitant]
     Dosage: 50 MG, BID
     Dates: start: 20100405

REACTIONS (4)
  - CARDIAC ARREST [None]
  - BRADYCARDIA [None]
  - ARRHYTHMIA [None]
  - PARKINSON'S DISEASE [None]
